FAERS Safety Report 9913015 (Version 2)
Quarter: 2016Q1

REPORT INFORMATION
  Report Type: Report from Study
  Country: CO (occurrence: CO)
  Receive Date: 20140220
  Receipt Date: 20160211
  Transmission Date: 20160526
  Serious: Yes (Hospitalization, Other)
  Sender: FDA-Public Use
  Company Number: CO-BAYER-2014-022474

PATIENT
  Age: 25 Year
  Sex: Female

DRUGS (1)
  1. BETAFERON [Suspect]
     Active Substance: INTERFERON BETA-1B
     Indication: MULTIPLE SCLEROSIS
     Dosage: 250 ?L, QOD
     Route: 058
     Dates: start: 20130913, end: 2014

REACTIONS (4)
  - Renal impairment [None]
  - Laboratory test abnormal [None]
  - Anaemia [None]
  - Multiple sclerosis [Unknown]

NARRATIVE: CASE EVENT DATE: 2014
